FAERS Safety Report 10254340 (Version 1)
Quarter: 2014Q2

REPORT INFORMATION
  Report Type: Spontaneous
  Country: US (occurrence: US)
  Receive Date: 20140624
  Receipt Date: 20140624
  Transmission Date: 20141212
  Serious: No
  Sender: FDA-Public Use
  Company Number: US-009507513-1406USA010421

PATIENT
  Sex: Female

DRUGS (2)
  1. JANUMET [Suspect]
     Indication: DIABETES MELLITUS
     Route: 048
  2. JANUMET XR [Suspect]
     Indication: DIABETES MELLITUS
     Route: 048

REACTIONS (1)
  - Foreign body [Recovered/Resolved]
